FAERS Safety Report 5199624-6 (Version None)
Quarter: 2007Q1

REPORT INFORMATION
  Report Type: 
  Country: None (occurrence: None)
  Receive Date: 20070102
  Receipt Date: 20070102
  Transmission Date: 20070707
  Serious: Yes (Life-Threatening)
  Sender: FDA-Public Use
  Company Number: None

PATIENT
  Age: 51 Year
  Sex: Male
  Weight: 117.9352 kg

DRUGS (2)
  1. IMITREX [Suspect]
     Indication: MIGRAINE
     Dosage: 50 MG PRN PO
     Route: 048
     Dates: start: 20061225, end: 20061226
  2. CIPROFLOXACIN [Suspect]
     Indication: PROSTATITIS
     Dosage: 500 MG Q12H PO
     Route: 048
     Dates: start: 20061211, end: 20061229

REACTIONS (1)
  - HALLUCINATION, AUDITORY [None]
